FAERS Safety Report 5152723-7 (Version None)
Quarter: 2006Q4

REPORT INFORMATION
  Report Type: 
  Country: None (occurrence: None)
  Receive Date: 20061116
  Receipt Date: 20061106
  Transmission Date: 20070319
  Serious: Yes (Other)
  Sender: FDA-Public Use
  Company Number: PL-ABBOTT-06P-129-0349461-00

PATIENT
  Age: 39 Year
  Sex: Male

DRUGS (3)
  1. DEPAKENE [Suspect]
     Indication: EPILEPSY
     Route: 048
     Dates: start: 20050501
  2. ZUCLOPENTHIXOL HYDROCHLORIDE [Concomitant]
     Indication: INSOMNIA
     Route: 048
  3. LAKTOMAG B6 [Concomitant]
     Indication: MINERAL SUPPLEMENTATION
     Route: 048

REACTIONS (11)
  - CONTUSION [None]
  - DRUG INEFFECTIVE [None]
  - EPILEPSY [None]
  - FALL [None]
  - FOAMING AT MOUTH [None]
  - JOINT INJURY [None]
  - LIMB INJURY [None]
  - MEDICATION RESIDUE [None]
  - MUSCULOSKELETAL STIFFNESS [None]
  - PETIT MAL EPILEPSY [None]
  - SCREAMING [None]
